FAERS Safety Report 6460846-5 (Version None)
Quarter: 2009Q4

REPORT INFORMATION
  Report Type: 
  Country: None (occurrence: None)
  Receive Date: 20091130
  Receipt Date: 20091122
  Transmission Date: 20100525
  Serious: Yes (Other)
  Sender: FDA-Public Use
  Company Number: US-PFIZER INC-2009280878

PATIENT
  Sex: Female
  Weight: 72.5 kg

DRUGS (1)
  1. DEPO-PROVERA [Suspect]
     Indication: CONTRACEPTION
     Dates: start: 20070101

REACTIONS (2)
  - INJECTION SITE NODULE [None]
  - INJECTION SITE SCAR [None]
